FAERS Safety Report 8489603-5 (Version None)
Quarter: 2012Q3

REPORT INFORMATION
  Report Type: 
  Country: None (occurrence: None)
  Receive Date: 20120705
  Receipt Date: 20120629
  Transmission Date: 20120928
  Serious: No
  Sender: FDA-Public Use
  Company Number: US-PFIZER INC-2012120733

PATIENT
  Sex: Female
  Weight: 50 kg

DRUGS (10)
  1. CLOZAPINE [Concomitant]
     Indication: DEPRESSION
     Dosage: 20 MG, 2X/DAY
     Dates: end: 20120501
  2. GLUCOSAMINE [Concomitant]
     Indication: ARTHROPATHY
     Dosage: UNK
     Dates: end: 20120501
  3. NEURONTIN [Suspect]
     Indication: NEURALGIA
  4. NEURONTIN [Suspect]
     Indication: INTERVERTEBRAL DISC PROTRUSION
     Dosage: 600 MG, 4X/DAY
  5. NEURONTIN [Suspect]
     Indication: SACROILIITIS
     Dosage: 1200 MG, 2X/DAY
     Dates: start: 20120330, end: 20120501
  6. CELEBREX [Suspect]
     Indication: ARTHRITIS
     Dosage: 200 MG, 2X/DAY
     Dates: start: 20070101, end: 20120501
  7. AMITRIPTYLINE [Concomitant]
     Indication: POOR QUALITY SLEEP
     Dosage: 10 MG, DAILY
     Dates: end: 20120501
  8. VITAMIN TAB [Concomitant]
     Indication: SKIN DISORDER
     Dosage: UNK
     Dates: end: 20120501
  9. VITAMIN TAB [Concomitant]
     Indication: NAIL DISORDER
  10. NEURONTIN [Suspect]
     Indication: BACK INJURY
     Dosage: 600 MG, 2X/DAY

REACTIONS (11)
  - EXOSTOSIS [None]
  - ARTHRITIS [None]
  - DEPRESSION [None]
  - THERAPEUTIC RESPONSE UNEXPECTED [None]
  - SACROILIITIS [None]
  - NEURALGIA [None]
  - ACTIVITIES OF DAILY LIVING IMPAIRED [None]
  - FIBROMYALGIA [None]
  - PAIN IN EXTREMITY [None]
  - DRUG INEFFECTIVE [None]
  - INTERVERTEBRAL DISC PROTRUSION [None]
